FAERS Safety Report 4627317-X (Version None)
Quarter: 2005Q1

REPORT INFORMATION
  Report Type: 
  Country: None (occurrence: None)
  Receive Date: 20050331
  Receipt Date: 20050324
  Transmission Date: 20050727
  Serious: Yes (Life-Threatening)
  Sender: FDA-Public Use
  Company Number: 2005SE01770

PATIENT
  Age: 67 Year
  Sex: Male

DRUGS (6)
  1. BLOPRESS [Suspect]
     Indication: HYPERTENSION
     Dosage: 8 MG QD PO
     Route: 048
     Dates: start: 20041217, end: 20050319
  2. BASEN [Concomitant]
  3. AMLODIN [Concomitant]
  4. PLETAL [Concomitant]
  5. DORNER [Concomitant]
  6. EUGLUCON [Concomitant]

REACTIONS (2)
  - PLATELET COUNT DECREASED [None]
  - WHITE BLOOD CELL COUNT DECREASED [None]
